FAERS Safety Report 9333764 (Version 1)
Quarter: 2013Q2

REPORT INFORMATION
  Report Type: Spontaneous
  Country: US (occurrence: US)
  Receive Date: 20130606
  Receipt Date: 20130606
  Transmission Date: 20140414
  Serious: No
  Sender: FDA-Public Use
  Company Number: US-AMGEN-USASP2012078705

PATIENT
  Age: 70 Year
  Sex: Female

DRUGS (9)
  1. PROLIA [Suspect]
     Indication: OSTEOPOROSIS POSTMENOPAUSAL
     Dosage: UNK
     Dates: start: 20120609
  2. ATORVASTATIN [Concomitant]
     Dosage: 40 MG, UNK
  3. LISINOPRIL [Concomitant]
     Dosage: 40 MG, UNK
  4. SYNTHROID [Concomitant]
     Dosage: 50 MG, UNK
  5. CALCIUM [Concomitant]
     Dosage: UNK UNK, BID
  6. ALLOPURINOL [Concomitant]
     Dosage: UNK UNK, BID
  7. ADVIL                              /00044201/ [Concomitant]
     Dosage: UNK UNK, PRN
  8. JANUMET [Concomitant]
     Dosage: UNK
  9. FOLIC ACID [Concomitant]
     Dosage: UNK

REACTIONS (5)
  - Back pain [Recovered/Resolved]
  - Spinal disorder [Unknown]
  - Walking aid user [Unknown]
  - Condition aggravated [Unknown]
  - Dry mouth [Unknown]
